FAERS Safety Report 4638334-8 (Version None)
Quarter: 2005Q2

REPORT INFORMATION
  Report Type: 
  Country: None (occurrence: None)
  Receive Date: 20050415
  Receipt Date: 20050404
  Transmission Date: 20051028
  Serious: Yes (Death, Hospitalization)
  Sender: FDA-Public Use
  Company Number: AZAFR200500113

PATIENT

DRUGS (3)
  1. VIDAZA [Suspect]
     Indication: MYELODYSPLASTIC SYNDROME
     Dosage: 150 MG ( 7 DAYS/MONTH), SUBCUTANEOUS
     Route: 058
     Dates: start: 20050304, end: 20050311
  2. OFLOCET (OFLOXACIN) [Concomitant]
  3. AMPICILLIN [Concomitant]

REACTIONS (10)
  - ACUTE PULMONARY OEDEMA [None]
  - CARDIAC FAILURE [None]
  - CEREBROVASCULAR ACCIDENT [None]
  - CONDITION AGGRAVATED [None]
  - HAEMOGLOBIN DECREASED [None]
  - NEUTROPENIA [None]
  - PLATELET COUNT DECREASED [None]
  - PLATELET COUNT INCREASED [None]
  - PNEUMONIA [None]
  - PYREXIA [None]
